FAERS Safety Report 11323671 (Version 2)
Quarter: 2015Q3

REPORT INFORMATION
  Report Type: Spontaneous
  Country: DE (occurrence: DE)
  Receive Date: 20150730
  Receipt Date: 20150804
  Transmission Date: 20151125
  Serious: Yes (Death, Life-Threatening)
  Sender: FDA-Public Use
  Company Number: DE-PFIZER INC-2015251090

PATIENT
  Age: 80 Year
  Sex: Male

DRUGS (10)
  1. EXELON [Concomitant]
     Active Substance: RIVASTIGMINE TARTRATE
     Dosage: 9.5 MG, 1X/DAY
     Dates: start: 20100501, end: 20110325
  2. NORVASC [Suspect]
     Active Substance: AMLODIPINE BESYLATE
     Dosage: 5 MG, 1X/DAY
     Route: 048
     Dates: start: 20110327
  3. HALDOL [Interacting]
     Active Substance: HALOPERIDOL
     Dosage: 5-10 MG, 1X/DAY
     Route: 048
     Dates: start: 20110323, end: 20110327
  4. CLEXANE [Concomitant]
     Active Substance: ENOXAPARIN SODIUM
     Dosage: 0.4 ML, UNK
     Route: 048
     Dates: start: 20110327
  5. COTRIM [Concomitant]
     Active Substance: SULFAMETHOXAZOLE\TRIMETHOPRIM
     Dosage: 160/180 UNK, 1X/DAY
     Dates: start: 20110324, end: 20110327
  6. BELOC-ZOK [Interacting]
     Active Substance: METOPROLOL SUCCINATE
     Dosage: 95 MG, 1X/DAY
     Route: 048
     Dates: start: 20110323, end: 20110327
  7. EUNERPAN [Interacting]
     Active Substance: MELPERONE HYDROCHLORIDE
     Dosage: 100 MG, 1X/DAY
     Route: 048
     Dates: start: 20110323, end: 20110325
  8. DELIX [Interacting]
     Active Substance: RAMIPRIL
     Dosage: 5 MG, 1X/DAY
     Route: 048
     Dates: start: 20110323, end: 20110327
  9. DIPIPERON [Interacting]
     Active Substance: PIPAMPERONE
     Dosage: 120 MG, 1X/DAY
     Route: 048
     Dates: start: 20110327
  10. PANTOZOL [Concomitant]
     Active Substance: PANTOPRAZOLE SODIUM
     Dosage: 80 MG, 1X/DAY
     Route: 048
     Dates: start: 20110327

REACTIONS (2)
  - Sudden death [Fatal]
  - Drug interaction [Unknown]

NARRATIVE: CASE EVENT DATE: 20110328
